FAERS Safety Report 9746903 (Version 1)
Quarter: 2013Q4

REPORT INFORMATION
  Report Type: Report from Study
  Country: US (occurrence: US)
  Receive Date: 20131211
  Receipt Date: 20131211
  Transmission Date: 20140711
  Serious: Yes (Other)
  Sender: FDA-Public Use
  Company Number: US-SA-2013SA125880

PATIENT
  Sex: Female

DRUGS (1)
  1. AUBAGIO [Suspect]
     Route: 065
     Dates: start: 20130901

REACTIONS (3)
  - Suicidal ideation [Not Recovered/Not Resolved]
  - Depressed mood [Not Recovered/Not Resolved]
  - Drug interaction [Not Recovered/Not Resolved]
